FAERS Safety Report 7731776-3 (Version None)
Quarter: 2011Q3

REPORT INFORMATION
  Report Type: 
  Country: None (occurrence: None)
  Receive Date: 20110906
  Receipt Date: 20110831
  Transmission Date: 20111222
  Serious: Yes (Other)
  Sender: FDA-Public Use
  Company Number: PHEH2011US02927

PATIENT
  Sex: Male

DRUGS (10)
  1. PROGRAF [Suspect]
     Dosage: 1 MG, BID
     Route: 048
     Dates: start: 20080908
  2. LISINOPRIL [Concomitant]
  3. ASCORBIC ACID [Concomitant]
  4. ALLOPURINOL [Concomitant]
  5. MYFORTIC [Suspect]
     Indication: RENAL TRANSPLANT
     Dosage: 360 MG, BID
     Route: 048
     Dates: start: 20100806
  6. SIMVASTATIN [Concomitant]
  7. NIFEDIPINE [Concomitant]
  8. GLIPIZIDE [Concomitant]
  9. MULTIVITAMIN [Concomitant]
  10. CALCITRIOL [Concomitant]

REACTIONS (6)
  - ABDOMINAL DISCOMFORT [None]
  - MALAISE [None]
  - DRUG INEFFECTIVE [None]
  - PARANOIA [None]
  - CHILLS [None]
  - FATIGUE [None]
